FAERS Safety Report 5125785-0 (Version None)
Quarter: 2006Q4

REPORT INFORMATION
  Report Type: 
  Country: None (occurrence: None)
  Receive Date: 20061010
  Receipt Date: 20061010
  Transmission Date: 20070319
  Serious: Yes (Hospitalization)
  Sender: FDA-Public Use
  Company Number: None

PATIENT
  Sex: Male
  Weight: 81.8 kg

DRUGS (1)
  1. TARCEVA [Suspect]
     Indication: PROSTATE CANCER
     Dosage: 150 MG 1 QD
     Dates: start: 20060518, end: 20060621

REACTIONS (9)
  - ASTHENIA [None]
  - BLOOD CULTURE POSITIVE [None]
  - CLOSTRIDIAL INFECTION [None]
  - CULTURE URINE POSITIVE [None]
  - DEHYDRATION [None]
  - DISEASE PROGRESSION [None]
  - STAPHYLOCOCCAL INFECTION [None]
  - STENT PLACEMENT [None]
  - SURGICAL PROCEDURE REPEATED [None]
